FAERS Safety Report 10207011 (Version 2)
Quarter: 2018Q2

REPORT INFORMATION
  Report Type: Report from Study
  Country: FI (occurrence: FI)
  Receive Date: 20140530
  Receipt Date: 20180529
  Transmission Date: 20180711
  Serious: Yes (Death)
  Sender: FDA-Public Use
  Company Number: FI-PFIZER INC-2014147257

PATIENT
  Age: 26 Year
  Sex: Male

DRUGS (7)
  1. PREGABALIN. [Suspect]
     Active Substance: PREGABALIN
     Dosage: UNK
  2. TEMAZEPAM. [Suspect]
     Active Substance: TEMAZEPAM
     Dosage: UNK
  3. OXAZEPAM. [Concomitant]
     Active Substance: OXAZEPAM
     Dosage: UNK
  4. TETRAHYDROCANNABINOL [Concomitant]
     Active Substance: DRONABINOL
     Dosage: UNK
  5. BUPRENORPHINE. [Suspect]
     Active Substance: BUPRENORPHINE
     Dosage: UNK
  6. NORDAZEPAM [Concomitant]
     Active Substance: NORDAZEPAM
     Dosage: UNK
  7. DIAZEPAM. [Concomitant]
     Active Substance: DIAZEPAM
     Dosage: UNK

REACTIONS (2)
  - Drug abuse [Fatal]
  - Toxicity to various agents [Fatal]
